FAERS Safety Report 19156998 (Version 8)
Quarter: 2023Q2

REPORT INFORMATION
  Report Type: Spontaneous
  Country: GB (occurrence: GB)
  Receive Date: 20210420
  Receipt Date: 20230623
  Transmission Date: 20230722
  Serious: Yes (Other)
  Sender: FDA-Public Use
  Company Number: None

PATIENT
  Age: 47 Year
  Sex: Male
  Weight: 95.25 kg

DRUGS (5)
  1. CLARITHROMYCIN [Suspect]
     Active Substance: CLARITHROMYCIN
     Indication: Lower respiratory tract infection
     Dosage: 500 MG, Q12H (500 MG, BID)
     Route: 030
     Dates: start: 20210305, end: 20210312
  2. CLARITHROMYCIN [Suspect]
     Active Substance: CLARITHROMYCIN
     Dosage: 1000 MG, QD (500MG X2 DAILY)
     Route: 030
     Dates: start: 20210305, end: 20210312
  3. CLARITHROMYCIN [Suspect]
     Active Substance: CLARITHROMYCIN
     Dosage: 1000 MG, BID
     Route: 048
     Dates: start: 20210312
  4. CLARITHROMYCIN [Suspect]
     Active Substance: CLARITHROMYCIN
     Dosage: 1000 MG, QD (500 MG, BID)
     Route: 048
     Dates: start: 20210312, end: 20210319
  5. CLARITHROMYCIN [Suspect]
     Active Substance: CLARITHROMYCIN
     Dosage: 500 MG, QD
     Route: 065
     Dates: start: 20210312, end: 20210319

REACTIONS (7)
  - Disorganised speech [Recovering/Resolving]
  - Dysgeusia [Recovered/Resolved]
  - Nightmare [Recovered/Resolved]
  - Myalgia [Recovered/Resolved]
  - Fatigue [Recovered/Resolved]
  - Confusional state [Recovered/Resolved]
  - Anxiety [Recovered/Resolved]

NARRATIVE: CASE EVENT DATE: 20210305
